FAERS Safety Report 5170256-9 (Version None)
Quarter: 2006Q4

REPORT INFORMATION
  Report Type: 
  Country: None (occurrence: None)
  Receive Date: 20061212
  Receipt Date: 20061130
  Transmission Date: 20070319
  Serious: Yes (Life-Threatening)
  Sender: FDA-Public Use
  Company Number: JAFRA25678

PATIENT
  Sex: Female
  Weight: 1.2 kg

DRUGS (1)
  1. DAKTARIN [Suspect]
     Indication: CANDIDIASIS
     Route: 042
     Dates: start: 19951002, end: 19951002

REACTIONS (10)
  - ATRIOVENTRICULAR BLOCK [None]
  - BRADYCARDIA [None]
  - DRUG TOXICITY [None]
  - ELECTROCARDIOGRAM QT PROLONGED [None]
  - ELECTROENCEPHALOGRAM ABNORMAL [None]
  - HYPERKALAEMIA [None]
  - HYPOCALCAEMIA [None]
  - INTRAVENTRICULAR HAEMORRHAGE [None]
  - VENTRICULAR EXTRASYSTOLES [None]
  - VENTRICULAR TACHYCARDIA [None]
